FAERS Safety Report 15485820 (Version 2)
Quarter: 2018Q4

REPORT INFORMATION
  Report Type: Spontaneous
  Country: ES (occurrence: ES)
  Receive Date: 20181010
  Receipt Date: 20181024
  Transmission Date: 20190205
  Serious: Yes (Disabling, Other)
  Sender: FDA-Public Use
  Company Number: ES-BAXTER-2018BAX024751

PATIENT
  Age: 41 Year
  Sex: Female

DRUGS (12)
  1. PROPOFOL. [Suspect]
     Active Substance: PROPOFOL
     Indication: ANAESTHESIA
  2. PROPOFOL. [Suspect]
     Active Substance: PROPOFOL
     Indication: HYPOTENSIVE ANAESTHESIA PROCEDURE
     Route: 065
  3. OXYGEN. [Concomitant]
     Active Substance: OXYGEN
     Indication: OXYGEN THERAPY
     Dosage: INSPIRED OXYGEN FRACTION OF 40% (OXYGEN/AIR) DURING MAINTENANCE OF ANAESTHESIA
     Route: 065
  4. MIDAZOLAM [Concomitant]
     Active Substance: MIDAZOLAM HYDROCHLORIDE
     Indication: PREMEDICATION
     Route: 042
  5. OXYMETAZOLINE HYDROCHLORIDE. [Concomitant]
     Active Substance: OXYMETAZOLINE HYDROCHLORIDE
     Indication: PREMEDICATION
     Route: 050
  6. OXYGEN. [Concomitant]
     Active Substance: OXYGEN
     Indication: PRODUCT USED FOR UNKNOWN INDICATION
     Dosage: OXYGEN 60% APPLIED DURING 5 MIN USING A FACIAL MASK
     Route: 065
  7. ROCURONIUM BROMIDE. [Suspect]
     Active Substance: ROCURONIUM BROMIDE
     Indication: GENERAL ANAESTHESIA
     Route: 065
  8. FENTANYL. [Suspect]
     Active Substance: FENTANYL
     Indication: ANAESTHESIA
  9. MORPHINE [Suspect]
     Active Substance: MORPHINE
     Indication: HYPOTENSIVE ANAESTHESIA PROCEDURE
     Route: 065
  10. REMIFENTANIL [Suspect]
     Active Substance: REMIFENTANIL
     Indication: HYPOTENSIVE ANAESTHESIA PROCEDURE
     Route: 065
  11. FENTANYL. [Suspect]
     Active Substance: FENTANYL
     Indication: HYPOTENSIVE ANAESTHESIA PROCEDURE
     Dosage: ADDITIONAL DOSES ALSO ADMINISTERED THROUGHOUT THE PROCEDURE
     Route: 065
  12. SEVOFLURANO 100% BAXTER [Suspect]
     Active Substance: SEVOFLURANE
     Indication: HYPOTENSIVE ANAESTHESIA PROCEDURE
     Route: 065

REACTIONS (2)
  - Blindness unilateral [Unknown]
  - Amaurosis [Not Recovered/Not Resolved]
